FAERS Safety Report 11472385 (Version 3)
Quarter: 2016Q1

REPORT INFORMATION
  Report Type: Spontaneous
  Country: US (occurrence: US)
  Receive Date: 20150908
  Receipt Date: 20160129
  Transmission Date: 20160525
  Serious: Yes (Death, Hospitalization)
  Sender: FDA-Public Use
  Company Number: US-UNITED THERAPEUTICS-UNT-2015-010968

PATIENT
  Age: 63 Year
  Sex: Female
  Weight: 42.63 kg

DRUGS (2)
  1. ORENITRAM [Suspect]
     Active Substance: TREPROSTINIL
     Indication: PULMONARY HYPERTENSION
     Dosage: 1.25 MG, TID
     Route: 048
     Dates: start: 20140606
  2. ORENITRAM [Suspect]
     Active Substance: TREPROSTINIL
     Dosage: UNK

REACTIONS (3)
  - General physical health deterioration [Fatal]
  - Suicidal ideation [Unknown]
  - Treatment noncompliance [Unknown]

NARRATIVE: CASE EVENT DATE: 201508
